FAERS Safety Report 7924765-7 (Version None)
Quarter: 2011Q4

REPORT INFORMATION
  Report Type: 
  Country: None (occurrence: None)
  Receive Date: 20111118
  Receipt Date: 20110328
  Transmission Date: 20120403
  Serious: No
  Sender: FDA-Public Use
  Company Number: US-AMGEN-USASP2011016500

PATIENT
  Age: 46 Year
  Sex: Female

DRUGS (3)
  1. ENBREL [Suspect]
     Indication: PRODUCT USED FOR UNKNOWN INDICATION
     Dosage: 50 MG, QWK
  2. COZAAR [Concomitant]
     Dosage: 100 MG, UNK
  3. PRILOSEC [Concomitant]
     Dosage: 10 MG, UNK

REACTIONS (1)
  - HEADACHE [None]
